FAERS Safety Report 15362546 (Version 1)
Quarter: 2018Q3

REPORT INFORMATION
  Report Type: Spontaneous
  Country: US (occurrence: US)
  Receive Date: 20180907
  Receipt Date: 20180907
  Transmission Date: 20181010
  Serious: No
  Sender: FDA-Public Use
  Company Number: US-SUNOVION-2018SUN003370

PATIENT
  Sex: Female

DRUGS (1)
  1. BROVANA [Suspect]
     Active Substance: ARFORMOTEROL TARTRATE
     Indication: PULMONARY FIBROSIS
     Dosage: 15MCG/2ML, SINGLE
     Route: 055

REACTIONS (2)
  - Off label use [Recovered/Resolved]
  - Drug ineffective [Not Recovered/Not Resolved]
